FAERS Safety Report 6815770-2 (Version None)
Quarter: 2010Q3

REPORT INFORMATION
  Report Type: 
  Country: None (occurrence: None)
  Receive Date: 20100704
  Receipt Date: 20100704
  Transmission Date: 20110219
  Serious: Yes (Hospitalization)
  Sender: FDA-Public Use
  Company Number: PR-ABBOTT-10P-131-0648868-00

PATIENT
  Sex: Male
  Weight: 80.812 kg

DRUGS (8)
  1. HUMIRA [Suspect]
     Indication: RHEUMATOID ARTHRITIS
     Route: 058
     Dates: start: 20100401
  2. PREDNISONE [Concomitant]
     Indication: RHEUMATOID ARTHRITIS
     Route: 048
  3. FOLIC ACID [Concomitant]
     Indication: RHEUMATOID ARTHRITIS
     Route: 048
  4. METHOTREXATE [Concomitant]
     Indication: RHEUMATOID ARTHRITIS
     Route: 058
  5. DIOVAN [Concomitant]
     Indication: HYPERTENSION
     Route: 048
  6. COREG [Concomitant]
     Indication: CARDIAC DISORDER
     Route: 048
  7. NORVASC [Concomitant]
     Indication: HYPERTENSION
     Route: 048
  8. LASIX [Concomitant]
     Indication: HYPERTENSION
     Route: 048

REACTIONS (9)
  - BLOOD POTASSIUM ABNORMAL [None]
  - BLOOD PRESSURE INADEQUATELY CONTROLLED [None]
  - EJECTION FRACTION ABNORMAL [None]
  - ERYTHEMA [None]
  - NEPHROTIC SYNDROME [None]
  - PROTEIN TOTAL ABNORMAL [None]
  - PRURITUS [None]
  - RASH GENERALISED [None]
  - SKIN EXFOLIATION [None]
